FAERS Safety Report 6672499-1 (Version None)
Quarter: 2010Q2

REPORT INFORMATION
  Report Type: 
  Country: None (occurrence: None)
  Receive Date: 20100408
  Receipt Date: 20100301
  Transmission Date: 20101027
  Serious: Yes (Other)
  Sender: FDA-Public Use
  Company Number: US-BAYER-201011644NA

PATIENT
  Age: 54 Year
  Sex: Male

DRUGS (13)
  1. MAGNEVIST [Suspect]
     Indication: NUCLEAR MAGNETIC RESONANCE IMAGING BRAIN
     Route: 042
     Dates: start: 19990509, end: 19990509
  2. MAGNEVIST [Suspect]
     Route: 042
     Dates: start: 19991017, end: 19991017
  3. MAGNEVIST [Suspect]
     Route: 042
     Dates: start: 20051022, end: 20051022
  4. ADALAT [Concomitant]
  5. ARANESP [Concomitant]
  6. BUMEX [Concomitant]
  7. FERROUS SULFATE TAB [Concomitant]
  8. LIPITOR [Concomitant]
  9. LOSARTAN POTASSIUM [Concomitant]
  10. HYDROXYCHLOROQUINE SULFATE [Concomitant]
     Dosage: TOTAL DAILY DOSE: 400 MG
     Route: 048
     Dates: start: 20070614, end: 20070628
  11. COZAAR [Concomitant]
  12. DOXAZOSIN [Concomitant]
  13. EPOGEN [Concomitant]

REACTIONS (18)
  - BURNING SENSATION [None]
  - DEFORMITY [None]
  - FATIGUE [None]
  - GENERAL PHYSICAL HEALTH DETERIORATION [None]
  - JOINT CONTRACTURE [None]
  - LIMB DISCOMFORT [None]
  - MUSCLE TIGHTNESS [None]
  - MUSCULOSKELETAL PAIN [None]
  - NEPHROGENIC SYSTEMIC FIBROSIS [None]
  - PAIN [None]
  - PAIN IN EXTREMITY [None]
  - PLEURAL FIBROSIS [None]
  - SCAR [None]
  - SKIN DISORDER [None]
  - SKIN HYPERPIGMENTATION [None]
  - SKIN HYPERTROPHY [None]
  - SKIN INDURATION [None]
  - SKIN TIGHTNESS [None]
